FAERS Safety Report 9384838 (Version 2)
Quarter: 2013Q3

REPORT INFORMATION
  Report Type: Spontaneous
  Country: DE (occurrence: None)
  Receive Date: 20130701
  Receipt Date: 20130709
  Transmission Date: 20140515
  Serious: Yes (Other)
  Sender: FDA-Public Use
  Company Number: AUR-APL-2013-05176

PATIENT
  Age: 34 Year
  Sex: Female

DRUGS (7)
  1. PIPERACILLIN+TAZOBACTAM (PIPERACILLIN, TAZOBACTAM) [Suspect]
     Indication: PRODUCT USED FOR UNKNOWN INDICATION
     Dosage: 13.5 GM (4.5 GM, 3 IN 1 D)
     Route: 042
  2. CLARITHROMYCIN (CLARITHROMYCIN) [Suspect]
     Indication: PRODUCT USED FOR UNKNOWN INDICATION
     Dosage: 500 MG (250 MG 2 IN 1 D)
  3. MOXIFLOXACIN [Suspect]
     Indication: PRODUCT USED FOR UNKNOWN INDICATION
     Route: 048
     Dates: start: 200806
  4. GENTAMICIN [Suspect]
     Indication: PRODUCT USED FOR UNKNOWN INDICATION
     Route: 042
  5. CEFTRIAXONE (CEFTRIAXONE) [Suspect]
     Indication: PRODUCT USED FOR UNKNOWN INDICATION
     Dosage: 1GM
     Route: 042
  6. CIPROFLOXACIN (CIPROFLOXACIN) [Suspect]
     Indication: PRODUCT USED FOR UNKNOWN INDICATION
     Dosage: 1000 MG (500 MG, 2 IN 1 D)
     Route: 048
  7. MEROPENEM [Suspect]
     Indication: PRODUCT USED FOR UNKNOWN INDICATION
     Dosage: 3 GM (1 GM, 3 IN 1 D)
     Route: 042
     Dates: start: 201105

REACTIONS (5)
  - Lung infection [None]
  - Splenomegaly [None]
  - Pneumonia [None]
  - Haemophilus infection [None]
  - Gene mutation [None]
